FAERS Safety Report 13334162 (Version 1)
Quarter: 2017Q1

REPORT INFORMATION
  Report Type: Spontaneous
  Country: US (occurrence: US)
  Receive Date: 20170314
  Receipt Date: 20170314
  Transmission Date: 20170428
  Serious: No
  Sender: FDA-Public Use
  Company Number: GXBR2016US003295

PATIENT
  Sex: Female
  Weight: 81.18 kg

DRUGS (5)
  1. EPLERENONE. [Suspect]
     Active Substance: EPLERENONE
     Indication: HYPERTENSION
  2. EPLERENONE. [Suspect]
     Active Substance: EPLERENONE
     Indication: HYPOKALAEMIA
  3. EPLERENONE. [Suspect]
     Active Substance: EPLERENONE
     Indication: HYPOALDOSTERONISM
     Dosage: 50 MG, BID
     Route: 048
     Dates: start: 201610
  4. LOSARTAN. [Concomitant]
     Active Substance: LOSARTAN
     Indication: HYPERTENSION
     Dosage: UNK DF, UNK
  5. ALDOSTERONE [Concomitant]
     Active Substance: ALDOSTERONE
     Dosage: UNK DF, UNK

REACTIONS (7)
  - Hypoaesthesia [Not Recovered/Not Resolved]
  - Product use issue [Unknown]
  - Diarrhoea [Recovered/Resolved]
  - Urinary incontinence [Not Recovered/Not Resolved]
  - Pain in extremity [Not Recovered/Not Resolved]
  - Heart rate irregular [Unknown]
  - Gastrooesophageal reflux disease [Unknown]
